FAERS Safety Report 6860262-8 (Version None)
Quarter: 2010Q3

REPORT INFORMATION
  Report Type: 
  Country: None (occurrence: None)
  Receive Date: 20100720
  Receipt Date: 20100707
  Transmission Date: 20110219
  Serious: Yes (Other)
  Sender: FDA-Public Use
  Company Number: PHHY2010IE08039

PATIENT
  Sex: Female

DRUGS (3)
  1. RASILEZ [Suspect]
     Dosage: UNK
     Route: 048
     Dates: start: 20090804, end: 20090904
  2. NEBIVOLOL HCL [Concomitant]
     Dosage: 5 MG, QD
  3. CENTYL [Concomitant]

REACTIONS (4)
  - ABORTION SPONTANEOUS [None]
  - DRUG EXPOSURE DURING PREGNANCY [None]
  - HYPERTENSION [None]
  - PREGNANCY [None]
